FAERS Safety Report 6648454-4 (Version None)
Quarter: 2010Q1

REPORT INFORMATION
  Report Type: 
  Country: None (occurrence: None)
  Receive Date: 20100319
  Receipt Date: 20100303
  Transmission Date: 20100710
  Serious: Yes (Hospitalization, Other)
  Sender: FDA-Public Use
  Company Number: DSA_42708_2010

PATIENT
  Sex: Female
  Weight: 64.0025 kg

DRUGS (16)
  1. ATIVAN [Suspect]
     Indication: DRUG USE FOR UNKNOWN INDICATION
     Dosage: DF
     Dates: end: 20090701
  2. CHANTIX [Suspect]
     Indication: SMOKING CESSATION THERAPY
     Dosage: DF, 0.5 MG
     Dates: start: 20081201, end: 20090702
  3. CHANTIX [Suspect]
     Indication: SMOKING CESSATION THERAPY
     Dosage: DF, 0.5 MG
     Dates: start: 20100208
  4. GEODON [Suspect]
     Indication: MANIA
     Dosage: DF
     Dates: start: 20090701, end: 20090101
  5. SEROQUEL [Suspect]
     Indication: DEPRESSION
     Dosage: DF, 50 MG
     Dates: start: 20090701, end: 20090701
  6. SEROQUEL [Suspect]
     Indication: DEPRESSION
     Dosage: DF, 50 MG
     Dates: start: 20090701
  7. VALIUM [Suspect]
     Indication: DRUG USE FOR UNKNOWN INDICATION
     Dosage: DF
     Dates: start: 20090701, end: 20090701
  8. DARVOCET [Suspect]
     Indication: DRUG USE FOR UNKNOWN INDICATION
     Dosage: DF
     Dates: start: 20090701
  9. TEGRETOL [Suspect]
     Dosage: 800 MG, 200 MG, 200 MG TID
     Dates: start: 20090701, end: 20090101
  10. TEGRETOL [Suspect]
     Dosage: 800 MG, 200 MG, 200 MG TID
     Dates: start: 20090701, end: 20090701
  11. PROPRANOLOL [Concomitant]
  12. BENADRYL [Concomitant]
  13. WELLBUTRIN /05703001/ [Concomitant]
  14. DESYREL [Concomitant]
  15. SIMVASTATIN [Concomitant]
  16. LEXAPRO [Concomitant]

REACTIONS (14)
  - ABNORMAL BEHAVIOUR [None]
  - ABNORMAL DREAMS [None]
  - AMNESIA [None]
  - DEATH OF PET [None]
  - DEPRESSION [None]
  - DIZZINESS [None]
  - EXTRAPYRAMIDAL DISORDER [None]
  - HYPONATRAEMIA [None]
  - INAPPROPRIATE SCHEDULE OF DRUG ADMINISTRATION [None]
  - MANIA [None]
  - PARTNER STRESS [None]
  - PSYCHOTIC DISORDER [None]
  - TACHYCARDIA [None]
  - TOBACCO USER [None]
